FAERS Safety Report 11004936 (Version 2)
Quarter: 2015Q3

REPORT INFORMATION
  Report Type: Spontaneous
  Country: GR (occurrence: GR)
  Receive Date: 20150409
  Receipt Date: 20150701
  Transmission Date: 20151125
  Serious: Yes (Disabling, Other)
  Sender: FDA-Public Use
  Company Number: PHHY2015GR041126

PATIENT
  Age: 9 Year
  Sex: Male
  Weight: 36 kg

DRUGS (8)
  1. ILARIS [Suspect]
     Active Substance: CANAKINUMAB
     Dosage: UNK
     Route: 058
     Dates: start: 20150212
  2. ILARIS [Suspect]
     Active Substance: CANAKINUMAB
     Dosage: UNK
     Route: 058
     Dates: start: 20141120
  3. COLCHICINE. [Concomitant]
     Active Substance: COLCHICINE
     Indication: PERICARDITIS
     Dosage: UNK
     Route: 048
     Dates: start: 20140401, end: 20141017
  4. ILARIS [Suspect]
     Active Substance: CANAKINUMAB
     Indication: JUVENILE IDIOPATHIC ARTHRITIS
     Dosage: 150 MG, ONE PER MONTH
     Route: 058
     Dates: start: 20141023
  5. ILARIS [Suspect]
     Active Substance: CANAKINUMAB
     Dosage: UNK
     Route: 058
     Dates: start: 20150115
  6. ILARIS [Suspect]
     Active Substance: CANAKINUMAB
     Dosage: UNK
     Route: 058
     Dates: start: 20141218
  7. COLCHICINE. [Concomitant]
     Active Substance: COLCHICINE
     Dosage: 1 MG, QD
     Route: 048
     Dates: start: 20150115
  8. ILARIS [Suspect]
     Active Substance: CANAKINUMAB
     Dosage: UNK
     Route: 058
     Dates: start: 20150312

REACTIONS (3)
  - Cholelithiasis [Unknown]
  - Renal colic [Recovering/Resolving]
  - Biliary colic [Unknown]

NARRATIVE: CASE EVENT DATE: 20150323
